FAERS Safety Report 18711712 (Version 1)
Quarter: 2021Q1

REPORT INFORMATION
  Report Type: Spontaneous
  Country: US (occurrence: US)
  Receive Date: 20210106
  Receipt Date: 20210106
  Transmission Date: 20210419
  Serious: No
  Sender: FDA-Public Use
  Company Number: None

PATIENT
  Age: 26 Year
  Sex: Female
  Weight: 58.97 kg

DRUGS (2)
  1. BUPROPION XL [Concomitant]
     Active Substance: BUPROPION
  2. NEXPLANON [Suspect]
     Active Substance: ETONOGESTREL

REACTIONS (6)
  - Headache [None]
  - Irritability [None]
  - Mood swings [None]
  - Suicidal ideation [None]
  - Premenstrual syndrome [None]
  - Depression [None]

NARRATIVE: CASE EVENT DATE: 20201231
